FAERS Safety Report 7761863-5 (Version None)
Quarter: 2011Q3

REPORT INFORMATION
  Report Type: 
  Country: None (occurrence: None)
  Receive Date: 20110920
  Receipt Date: 20110914
  Transmission Date: 20111222
  Serious: Yes (Hospitalization)
  Sender: FDA-Public Use
  Company Number: US-VERTEX PHARMACEUTICALS INC.-AE-2011-001545

PATIENT
  Sex: Male
  Weight: 72.64 kg

DRUGS (4)
  1. INCIVEK [Suspect]
     Indication: HEPATITIS C
     Route: 048
     Dates: start: 20110905, end: 20110913
  2. PEGINTERFERON ALPHA [Concomitant]
     Indication: HEPATITIS C
     Dates: start: 20110905, end: 20110913
  3. RIBAVIRIN [Concomitant]
     Indication: HEPATITIS C
     Dates: start: 20110905, end: 20110913
  4. INSULIN [Concomitant]

REACTIONS (7)
  - NAUSEA [None]
  - RASH [None]
  - MYALGIA [None]
  - ASTHENIA [None]
  - PANCREATITIS ACUTE [None]
  - BONE PAIN [None]
  - INFLUENZA [None]
